FAERS Safety Report 20048719 (Version 6)
Quarter: 2022Q1

REPORT INFORMATION
  Report Type: Spontaneous
  Country: US (occurrence: US)
  Receive Date: 20211109
  Receipt Date: 20220209
  Transmission Date: 20220423
  Serious: No
  Sender: FDA-Public Use
  Company Number: US-NOVARTISTESTPH-NVSC2021US256006

PATIENT
  Sex: Male

DRUGS (1)
  1. XIIDRA [Suspect]
     Active Substance: LIFITEGRAST
     Indication: Dry eye
     Dosage: 1 DRP, BID (BOTH EYES)
     Route: 065

REACTIONS (4)
  - Eye swelling [Unknown]
  - Product after taste [Unknown]
  - Product administration error [Unknown]
  - Condition aggravated [Unknown]
